FAERS Safety Report 16336160 (Version 1)
Quarter: 2019Q2

REPORT INFORMATION
  Report Type: Spontaneous
  Country: CH (occurrence: CH)
  Receive Date: 20190521
  Receipt Date: 20190521
  Transmission Date: 20190711
  Serious: Yes (Hospitalization, Other)
  Sender: FDA-Public Use
  Company Number: CH-CPL-001014

PATIENT
  Age: 85 Year
  Sex: Male

DRUGS (8)
  1. SACUBITRIL/VALSARTAN [Interacting]
     Active Substance: SACUBITRIL\VALSARTAN
     Indication: CARDIAC FAILURE CHRONIC
     Dosage: 200 MG (97/103 MG)
  2. ACETYLSALICYLIC ACID [Concomitant]
     Active Substance: ASPIRIN
  3. METOPROLOL. [Concomitant]
     Active Substance: METOPROLOL
  4. AMIODARONE [Interacting]
     Active Substance: AMIODARONE
     Indication: VENTRICULAR TACHYCARDIA
  5. ROSUVASTATIN/ROSUVASTATIN CALCIUM [Suspect]
     Active Substance: ROSUVASTATIN CALCIUM
     Indication: PRODUCT USED FOR UNKNOWN INDICATION
  6. TORASEMIDE [Concomitant]
     Active Substance: TORSEMIDE
  7. SPIRONOLACTONE. [Concomitant]
     Active Substance: SPIRONOLACTONE
  8. SITAGLIPTIN/SITAGLIPTIN PHOSPHATE [Concomitant]

REACTIONS (6)
  - Acute kidney injury [Recovering/Resolving]
  - Drug interaction [Unknown]
  - Liver injury [Recovering/Resolving]
  - Rhabdomyolysis [Recovering/Resolving]
  - Drug level increased [Recovering/Resolving]
  - Low cardiac output syndrome [Recovering/Resolving]
